FAERS Safety Report 9552675 (Version 1)
Quarter: 2013Q3

REPORT INFORMATION
  Report Type: Spontaneous
  Country: US (occurrence: US)
  Receive Date: 20130925
  Receipt Date: 20130925
  Transmission Date: 20140515
  Serious: No
  Sender: FDA-Public Use
  Company Number: US-PURDUE-USA-2012-0091848

PATIENT
  Sex: Female
  Weight: 49.89 kg

DRUGS (9)
  1. MS CONTIN TABLETS [Suspect]
     Indication: MYALGIA
  2. PREDNISONE [Suspect]
  3. LYRICA [Suspect]
     Indication: HYPOAESTHESIA
     Dosage: 50 MG, TID
     Dates: end: 2010
  4. ALPRAZOLAM [Suspect]
     Indication: STRESS
     Dosage: 1 MG, TID
     Route: 048
  5. ALPRAZOLAM [Suspect]
     Indication: NEURALGIA
  6. KADIAN [Concomitant]
     Indication: MUSCLE DISORDER
     Dosage: 20 MG, BID
  7. GINKOBA [Concomitant]
     Indication: AMNESIA
     Dosage: 120 MG, DAILY
     Route: 048
  8. TEMAZEPAM [Concomitant]
     Indication: INSOMNIA
     Dosage: 50 MG, DAILY
  9. HYDROCODONE W/ACETAMINOPHEN [Concomitant]
     Dosage: 10 MG, QID

REACTIONS (7)
  - Weight increased [Unknown]
  - Increased appetite [Unknown]
  - Pain [Unknown]
  - Swelling [Unknown]
  - Hot flush [Unknown]
  - Hyperhidrosis [Unknown]
  - Drug ineffective [Unknown]
